FAERS Safety Report 16794748 (Version 3)
Quarter: 2019Q4

REPORT INFORMATION
  Report Type: Report from Study
  Country: US (occurrence: US)
  Receive Date: 20190911
  Receipt Date: 20191031
  Transmission Date: 20200122
  Serious: Yes (Other)
  Sender: FDA-Public Use
  Company Number: US-ROCHE-2064027

PATIENT
  Age: 76 Year
  Sex: Female
  Weight: 68.1 kg

DRUGS (9)
  1. ESBRIET [Suspect]
     Active Substance: PIRFENIDONE
     Dosage: 2 PILLS 3 TIMES A DAY
     Route: 048
     Dates: start: 201905
  2. ESBRIET [Suspect]
     Active Substance: PIRFENIDONE
     Dosage: 2 PILLS, 3 TIMES DAILY:
     Route: 048
     Dates: start: 2017, end: 20190903
  3. BACTRIM [Concomitant]
     Active Substance: SULFAMETHOXAZOLE\TRIMETHOPRIM
  4. ASPIRIN [ACETYLSALICYLIC ACID] [Concomitant]
     Active Substance: ASPIRIN
     Route: 065
  5. ESBRIET [Suspect]
     Active Substance: PIRFENIDONE
     Dosage: AKE 2 TABLET(S) BY MOUTH 3 TIMES A DAY WITH MEALS
     Route: 048
  6. ESBRIET [Suspect]
     Active Substance: PIRFENIDONE
     Indication: IDIOPATHIC PULMONARY FIBROSIS
     Route: 048
     Dates: end: 201811
  7. CHOLESTEROL [Concomitant]
     Active Substance: CHOLESTEROL
     Route: 048
     Dates: start: 201708
  8. LIPITOR [Concomitant]
     Active Substance: ATORVASTATIN CALCIUM
     Indication: BLOOD CHOLESTEROL
     Route: 065
  9. PREDNISONE. [Concomitant]
     Active Substance: PREDNISONE
     Route: 065

REACTIONS (16)
  - Diarrhoea [Recovered/Resolved]
  - Anxiety [Recovered/Resolved]
  - Abdominal discomfort [Unknown]
  - Tryptase increased [Unknown]
  - Abdominal pain upper [Recovered/Resolved]
  - Photosensitivity reaction [Recovered/Resolved]
  - Diverticulitis [Unknown]
  - Headache [Not Recovered/Not Resolved]
  - Rash [Unknown]
  - Fatigue [Unknown]
  - Gastric infection [Not Recovered/Not Resolved]
  - Nausea [Recovered/Resolved]
  - Dyspepsia [Recovered/Resolved]
  - Influenza [Not Recovered/Not Resolved]
  - Food poisoning [Not Recovered/Not Resolved]
  - Eye swelling [Unknown]

NARRATIVE: CASE EVENT DATE: 2017
